FAERS Safety Report 10082690 (Version 2)
Quarter: 2014Q2

REPORT INFORMATION
  Report Type: Spontaneous
  Country: US (occurrence: US)
  Receive Date: 20140416
  Receipt Date: 20140509
  Transmission Date: 20141212
  Serious: Yes (Death, Hospitalization)
  Sender: FDA-Public Use
  Company Number: US-B.I. PHARMACEUTICALS,INC./RIDGEFIELD-2014-BI-17188BP

PATIENT
  Age: 79 Year
  Sex: Male

DRUGS (6)
  1. SPIRIVA [Suspect]
     Indication: CHRONIC OBSTRUCTIVE PULMONARY DISEASE
     Dosage: 18 MCG
     Route: 055
     Dates: start: 201212
  2. COMBIVENT [Suspect]
     Indication: CHRONIC OBSTRUCTIVE PULMONARY DISEASE
     Dosage: FORMULATION: RESPIMAT INHALATION SPRAY: STRENGTH: 20 MCG / 100 MCG; DAILY DOSE: 80 MCG/400 MCG
     Route: 055
     Dates: start: 201310
  3. FLOMAX [Concomitant]
     Dosage: FORMULATION: CAPLET
     Route: 048
  4. GABAPENTIN [Concomitant]
     Route: 048
  5. WARFARIN [Concomitant]
     Route: 048
  6. ADVAIR [Concomitant]
     Dosage: FORMULATION: INHALATION SPRAY
     Route: 055

REACTIONS (3)
  - Thrombosis [Fatal]
  - Embolism [Fatal]
  - Hip fracture [Unknown]
